FAERS Safety Report 6275303-9 (Version None)
Quarter: 2009Q3

REPORT INFORMATION
  Report Type: 
  Country: None (occurrence: None)
  Receive Date: 20090721
  Receipt Date: 20090714
  Transmission Date: 20100115
  Serious: Yes (Death, Hospitalization)
  Sender: FDA-Public Use
  Company Number: A0797623A

PATIENT
  Age: 75 Year
  Sex: Female

DRUGS (3)
  1. ROSIGLITAZONE MALEATE [Suspect]
     Route: 048
  2. ASPIRIN [Concomitant]
  3. INSULIN [Concomitant]

REACTIONS (5)
  - BLOOD DISORDER [None]
  - CARDIAC FAILURE [None]
  - DEATH [None]
  - MYOCARDIAL INFARCTION [None]
  - RENAL FAILURE [None]
